FAERS Safety Report 8271372-5 (Version None)
Quarter: 2012Q2

REPORT INFORMATION
  Report Type: 
  Country: None (occurrence: None)
  Receive Date: 20120410
  Receipt Date: 20120203
  Transmission Date: 20120825
  Serious: No
  Sender: FDA-Public Use
  Company Number: US-NOVEN-12US004047

PATIENT
  Sex: Female
  Weight: 90.703 kg

DRUGS (16)
  1. SYNTHROID [Concomitant]
     Indication: HYPOTHYROIDISM
     Dosage: 300 MG, UNK
     Route: 048
  2. PROVERA [Concomitant]
     Indication: HORMONE REPLACEMENT THERAPY
  3. FENTANYL CITRATE [Suspect]
     Indication: MUSCULOSKELETAL DISCOMFORT
  4. BENADRYL [Concomitant]
     Indication: PRURITUS
  5. ESTRADIOL [Concomitant]
     Indication: HORMONE REPLACEMENT THERAPY
  6. RANITIDINE [Concomitant]
     Indication: GASTROOESOPHAGEAL REFLUX DISEASE
     Dosage: 300 MG, UNK
     Route: 048
  7. IBUPROFEN (ADVIL) [Concomitant]
     Indication: BREAKTHROUGH PAIN
     Dosage: 3 TABLETS 3 TIMES A DAY
     Route: 048
  8. CYMBALTA [Concomitant]
     Indication: PRODUCT USED FOR UNKNOWN INDICATION
     Dosage: 30 MG, UNK
  9. PREMARIN [Concomitant]
     Indication: HORMONE REPLACEMENT THERAPY
  10. DOCUSATE SODIUM [Concomitant]
     Indication: PRODUCT USED FOR UNKNOWN INDICATION
     Dosage: 400 MG, BEDTIME
  11. LYRICA [Concomitant]
     Indication: PRODUCT USED FOR UNKNOWN INDICATION
  12. FENTANYL CITRATE [Suspect]
     Indication: HIP DYSPLASIA
     Dosage: 100 UG/HR, Q 3 DAYS
     Route: 062
     Dates: start: 20120121
  13. OXYCODONE HCL [Concomitant]
     Indication: BREAKTHROUGH PAIN
     Dosage: 15 MG, 2 OR 3 EVERY 6 HOURS
     Route: 048
  14. MILK OF MAGNESIA TAB [Concomitant]
     Indication: CONSTIPATION
  15. CYMBALTA [Concomitant]
     Dosage: 60 MG, UNK
  16. FENTANYL CITRATE [Suspect]
     Indication: BACK PAIN
     Dosage: 50 UG/HR, Q 3 DAYS
     Route: 062
     Dates: start: 20120121

REACTIONS (5)
  - ANXIETY [None]
  - APPLICATION SITE PRURITUS [None]
  - DRUG ADMINISTRATION ERROR [None]
  - PRODUCT QUALITY ISSUE [None]
  - INADEQUATE ANALGESIA [None]
